FAERS Safety Report 11029531 (Version 2)
Quarter: 2015Q2

REPORT INFORMATION
  Report Type: Spontaneous
  Country: FR (occurrence: FR)
  Receive Date: 20150415
  Receipt Date: 20150423
  Transmission Date: 20150821
  Serious: Yes (Life-Threatening, Other)
  Sender: FDA-Public Use
  Company Number: FR-EMCURE-000803

PATIENT
  Age: 57 Year
  Sex: Female

DRUGS (9)
  1. ZEVALIN [Suspect]
     Active Substance: IBRITUMOMAB TIUXETAN
     Indication: PRODUCT USED FOR UNKNOWN INDICATION
     Dosage: ON D-14 AND D-21
     Route: 065
  2. KYTRIL [Suspect]
     Active Substance: GRANISETRON HYDROCHLORIDE
     Indication: VOMITING
     Route: 065
  3. EMEND [Concomitant]
     Active Substance: APREPITANT
     Indication: VOMITING
  4. BICNU [Suspect]
     Active Substance: CARMUSTINE
     Indication: PRODUCT USED FOR UNKNOWN INDICATION
     Dosage: ON DAY 6
     Route: 065
     Dates: start: 20141128
  5. ARACYTINE [Suspect]
     Active Substance: CYTARABINE
     Indication: PRODUCT USED FOR UNKNOWN INDICATION
     Dosage: FROM D-3 TO D-6
     Route: 065
     Dates: start: 20141128
  6. ALKERAN [Suspect]
     Active Substance: MELPHALAN
     Indication: PRODUCT USED FOR UNKNOWN INDICATION
     Dosage: ON D-2
     Route: 065
     Dates: start: 20141202
  7. ETOPOSIDE TEVA [Suspect]
     Active Substance: ETOPOSIDE
     Indication: PRODUCT USED FOR UNKNOWN INDICATION
     Dosage: FROM D-6 TO D-3
     Route: 065
     Dates: start: 20141128
  8. SOLU-MEDROL [Concomitant]
     Active Substance: METHYLPREDNISOLONE SODIUM SUCCINATE
     Indication: VOMITING
  9. NEULASTA [Concomitant]
     Active Substance: PEGFILGRASTIM

REACTIONS (14)
  - Enterobacter infection [None]
  - Stomatitis [Recovered/Resolved]
  - Venoocclusive disease [Unknown]
  - Escherichia infection [None]
  - Generalised oedema [Recovered/Resolved]
  - Transaminases increased [Recovered/Resolved]
  - Pyelonephritis acute [Recovering/Resolving]
  - Febrile bone marrow aplasia [Recovered/Resolved]
  - Cholestasis [Recovering/Resolving]
  - Blood culture positive [None]
  - Diarrhoea [Recovered/Resolved]
  - Streptococcal infection [None]
  - Nausea [Recovered/Resolved]
  - Vomiting [Recovered/Resolved]

NARRATIVE: CASE EVENT DATE: 20141206
